FAERS Safety Report 6427099-5 (Version None)
Quarter: 2009Q4

REPORT INFORMATION
  Report Type: 
  Country: None (occurrence: None)
  Receive Date: 20091103
  Receipt Date: 20091103
  Transmission Date: 20100525
  Serious: No
  Sender: FDA-Public Use
  Company Number: None

PATIENT
  Age: 54 Year
  Sex: Male

DRUGS (1)
  1. VARENICLINE [Suspect]
     Indication: SMOKING CESSATION THERAPY
     Dosage: 0.5 MG EVERY DAY PO
     Route: 048
     Dates: start: 20081007, end: 20081021

REACTIONS (7)
  - AGITATION [None]
  - ANXIETY [None]
  - COLD SWEAT [None]
  - DYSPNOEA [None]
  - INSOMNIA [None]
  - MIDDLE INSOMNIA [None]
  - RESPIRATORY DEPRESSION [None]
